FAERS Safety Report 7570023-2 (Version None)
Quarter: 2011Q2

REPORT INFORMATION
  Report Type: 
  Country: None (occurrence: None)
  Receive Date: 20110622
  Receipt Date: 20110622
  Transmission Date: 20111010
  Serious: Yes (Other)
  Sender: FDA-Public Use
  Company Number: None

PATIENT
  Age: 34 Year
  Sex: Female
  Weight: 59.1 kg

DRUGS (8)
  1. DAYPRO [Concomitant]
  2. PERCOCET [Concomitant]
  3. DEMEROL [Concomitant]
  4. NAPROXEN (ALEVE) [Concomitant]
  5. EXCEDRIN (MIGRAINE) [Concomitant]
  6. METAXALONE [Suspect]
     Indication: INTERVERTEBRAL DISC DEGENERATION
     Dosage: 800 MG  1/DAY 002
     Dates: start: 20080101, end: 20110101
  7. SKELAXIN [Suspect]
     Indication: INTERVERTEBRAL DISC DEGENERATION
     Dosage: 800 MG
     Dates: start: 20080101, end: 20110101
  8. ULTRAM [Concomitant]

REACTIONS (3)
  - ACNE [None]
  - FAT TISSUE INCREASED [None]
  - ALOPECIA [None]
